FAERS Safety Report 5006802-5 (Version None)
Quarter: 2006Q2

REPORT INFORMATION
  Report Type: 
  Country: None (occurrence: None)
  Receive Date: 20060519
  Receipt Date: 20060309
  Transmission Date: 20061013
  Serious: No
  Sender: FDA-Public Use
  Company Number: PHBS2006JP03881

PATIENT
  Age: 52 Year
  Sex: Female

DRUGS (2)
  1. NEORAL [Suspect]
     Indication: INTERSTITIAL LUNG DISEASE
     Dosage: 200 MG/D
     Route: 048
     Dates: start: 20060101
  2. PREDONINE [Suspect]
     Indication: INTERSTITIAL LUNG DISEASE
     Dosage: 20 MG/D
     Route: 048
     Dates: start: 20060101

REACTIONS (3)
  - INCORRECT DOSE ADMINISTERED [None]
  - JUDGEMENT IMPAIRED [None]
  - MUSCLE SPASMS [None]
